FAERS Safety Report 7622938-4 (Version None)
Quarter: 2011Q3

REPORT INFORMATION
  Report Type: 
  Country: None (occurrence: None)
  Receive Date: 20110720
  Receipt Date: 20110710
  Transmission Date: 20111222
  Serious: Yes (Hospitalization, Other)
  Sender: FDA-Public Use
  Company Number: US-US-EMD SERONO, INC.-231425J10USA

PATIENT
  Sex: Male
  Weight: 68 kg

DRUGS (8)
  1. BACLOFEN [Concomitant]
     Indication: MULTIPLE SCLEROSIS
     Route: 065
  2. WELLBUTRIN [Concomitant]
     Route: 065
  3. PRAVASTATIN [Concomitant]
     Indication: BLOOD CHOLESTEROL INCREASED
     Route: 065
  4. TOPAMAX [Concomitant]
     Indication: MULTIPLE SCLEROSIS
     Route: 065
  5. NYSTATIN [Concomitant]
     Indication: BLOOD CHOLESTEROL INCREASED
     Route: 065
  6. LORTAB [Concomitant]
     Indication: PAIN
  7. REBIF [Suspect]
     Indication: MULTIPLE SCLEROSIS
     Route: 058
     Dates: start: 20091023
  8. COREG [Concomitant]
     Indication: PROPHYLAXIS
     Route: 065

REACTIONS (11)
  - BRONCHITIS [None]
  - CHROMATURIA [None]
  - DEPRESSION [None]
  - RECTAL HAEMORRHAGE [None]
  - VOMITING [None]
  - MULTIPLE SCLEROSIS [None]
  - SELF-INJURIOUS IDEATION [None]
  - CONSTIPATION [None]
  - TYPE 2 DIABETES MELLITUS [None]
  - DYSPNOEA [None]
  - NAUSEA [None]
